FAERS Safety Report 13563433 (Version 2)
Quarter: 2017Q2

REPORT INFORMATION
  Report Type: Spontaneous
  Country: US (occurrence: US)
  Receive Date: 20170519
  Receipt Date: 20170612
  Transmission Date: 20170830
  Serious: No
  Sender: FDA-Public Use
  Company Number: US-PFIZER INC-2017219770

PATIENT
  Age: 70 Year
  Sex: Female

DRUGS (3)
  1. HYDROCHLOROTH [Concomitant]
     Active Substance: HYDROCHLOROTHIAZIDE
     Indication: DIURETIC THERAPY
     Dosage: 25MG ONCE PER DAY
  2. VFEND [Suspect]
     Active Substance: VORICONAZOLE
     Indication: HISTOPLASMOSIS
     Dosage: 20 MG, 1X/DAY
     Route: 048
  3. CARTIA XT [Concomitant]
     Active Substance: DILTIAZEM HYDROCHLORIDE
     Indication: HYPERTENSION
     Dosage: 180MG BY MOUTH ONCE DAILY
     Route: 048

REACTIONS (2)
  - Drug ineffective for unapproved indication [Not Recovered/Not Resolved]
  - Weight decreased [Not Recovered/Not Resolved]

NARRATIVE: CASE EVENT DATE: 20170511
